FAERS Safety Report 9377435 (Version 1)
Quarter: 2013Q3

REPORT INFORMATION
  Report Type: Spontaneous
  Country: US (occurrence: US)
  Receive Date: 20130701
  Receipt Date: 20130701
  Transmission Date: 20140515
  Serious: Yes (Death)
  Sender: FDA-Public Use
  Company Number: US-COVIDIEN/TYCO HEALTHCARE/MALLINCKRODT-T201303594

PATIENT
  Sex: Male

DRUGS (1)
  1. FENTANYL CITRATE [Suspect]

REACTIONS (1)
  - Death [Fatal]
